FAERS Safety Report 5336890-8 (Version None)
Quarter: 2007Q2

REPORT INFORMATION
  Report Type: 
  Country: None (occurrence: None)
  Receive Date: 20070529
  Receipt Date: 20070521
  Transmission Date: 20071010
  Serious: Yes (Other)
  Sender: FDA-Public Use
  Company Number: AU-AVENTIS-200713865GDDC

PATIENT
  Age: 71 Year
  Sex: Male

DRUGS (2)
  1. LANTUS [Suspect]
     Route: 058
  2. AUTOPEN 24 [Suspect]

REACTIONS (2)
  - BLOOD GLUCOSE FLUCTUATION [None]
  - BLOOD KETONE BODY [None]
